FAERS Safety Report 7604043-6 (Version None)
Quarter: 2011Q3

REPORT INFORMATION
  Report Type: 
  Country: None (occurrence: None)
  Receive Date: 20110711
  Receipt Date: 20110711
  Transmission Date: 20111222
  Serious: Yes (Life-Threatening)
  Sender: FDA-Public Use
  Company Number: None

PATIENT
  Sex: Female
  Weight: 90.5 kg

DRUGS (2)
  1. RITUXIMAB 10 MG/ML RITUXAN [Suspect]
     Indication: CHRONIC LYMPHOCYTIC LEUKAEMIA
     Dosage: RITUXAN 500 MG/M2 ONE TIME IV RITUXAN 375 MG/M2 ONE TIME IV
     Route: 042
     Dates: start: 20110316, end: 20110316
  2. RITUXIMAB 10 MG/ML RITUXAN [Suspect]
     Indication: CHRONIC LYMPHOCYTIC LEUKAEMIA
     Dosage: RITUXAN 500 MG/M2 ONE TIME IV RITUXAN 375 MG/M2 ONE TIME IV
     Route: 042
     Dates: start: 20110209, end: 20110209

REACTIONS (2)
  - PROGRESSIVE MULTIFOCAL LEUKOENCEPHALOPATHY [None]
  - HERPES ZOSTER [None]
